FAERS Safety Report 8064438-6 (Version None)
Quarter: 2012Q1

REPORT INFORMATION
  Report Type: 
  Country: None (occurrence: None)
  Receive Date: 20120123
  Receipt Date: 20120118
  Transmission Date: 20120608
  Serious: Yes (Death, Life-Threatening, Hospitalization, Other)
  Sender: FDA-Public Use
  Company Number: FR-PFIZER INC-2011092525

PATIENT
  Age: 90 Year
  Sex: Female

DRUGS (5)
  1. RAMIPRIL [Suspect]
     Dosage: UNK
     Dates: start: 20101207, end: 20101215
  2. CEFUROXIME [Concomitant]
     Dosage: UNK
     Dates: start: 20101010, end: 20101023
  3. HYDROCHLOROTHIAZIDE AND RAMIPRIL [Suspect]
     Dosage: UNK
     Dates: start: 20101202, end: 20101206
  4. RIFAMPICIN [Suspect]
     Indication: WOUND INFECTION
     Dosage: 600 MG, 1X/DAY
     Dates: start: 20101012, end: 20101019
  5. RAMIPRIL [Suspect]
     Dosage: 5 MG, UNK
     Route: 048
     Dates: end: 20101021

REACTIONS (3)
  - DEATH [None]
  - RENAL FAILURE ACUTE [None]
  - CONVULSION [None]
